FAERS Safety Report 6467894-X (Version None)
Quarter: 2009Q4

REPORT INFORMATION
  Report Type: 
  Country: None (occurrence: None)
  Receive Date: 20091202
  Receipt Date: 20091124
  Transmission Date: 20100525
  Serious: Yes (Hospitalization)
  Sender: FDA-Public Use
  Company Number: DE-AMGEN-US377489

PATIENT
  Age: 70 Year
  Sex: Female

DRUGS (11)
  1. ENBREL [Suspect]
     Indication: PSORIATIC ARTHROPATHY
     Dosage: LYOPHILIZED, DOSE AND FREQUENCY UNKNOWN
     Route: 058
     Dates: start: 20060101
  2. CALCIUM [Concomitant]
     Route: 065
  3. VITAMIN D3 [Concomitant]
     Route: 065
  4. ALLOPURINOL [Concomitant]
     Route: 065
  5. PERENTEROL [Concomitant]
     Route: 065
  6. ALENDRONIC ACID [Concomitant]
     Route: 065
  7. HYDROMORPHONE HCL [Concomitant]
     Route: 065
  8. OMEPRAZOLE [Concomitant]
     Route: 065
  9. CITALOPRAM HYDROBROMIDE [Concomitant]
     Route: 065
  10. TORASEMIDE [Concomitant]
     Route: 065
  11. NOVALGIN [Concomitant]
     Route: 065

REACTIONS (3)
  - IMPAIRED HEALING [None]
  - SKIN GRAFT [None]
  - SKIN ULCER [None]
